FAERS Safety Report 5085712-1 (Version None)
Quarter: 2006Q3

REPORT INFORMATION
  Report Type: 
  Country: None (occurrence: None)
  Receive Date: 20060822
  Receipt Date: 20060811
  Transmission Date: 20061208
  Serious: Yes (Hospitalization)
  Sender: FDA-Public Use
  Company Number: FR-ROCHE-459816

PATIENT
  Age: 69 Year
  Sex: Male

DRUGS (1)
  1. ROCEPHIN [Suspect]
     Indication: BRONCHOPNEUMOPATHY
     Dosage: FORM= INJECTABLE SOLUTION.
     Route: 042
     Dates: end: 20060807

REACTIONS (4)
  - ANAEMIA [None]
  - INFLAMMATION [None]
  - PYREXIA [None]
  - RENAL FAILURE [None]
